FAERS Safety Report 7052616-4 (Version None)
Quarter: 2010Q4

REPORT INFORMATION
  Report Type: 
  Country: None (occurrence: None)
  Receive Date: 20101019
  Receipt Date: 20101014
  Transmission Date: 20110411
  Serious: Yes (Other)
  Sender: FDA-Public Use
  Company Number: AR-PFIZER INC-2010116907

PATIENT
  Age: 65 Year
  Sex: Male

DRUGS (4)
  1. CHAMPIX [Suspect]
     Indication: SMOKING CESSATION THERAPY
     Dosage: 1 MG, 2X/DAY, EVERY DAY
     Route: 048
     Dates: start: 20100901
  2. METFORMIN [Concomitant]
     Dosage: UNK
     Route: 048
  3. AMARYL [Concomitant]
     Dosage: UNK
     Route: 048
  4. ZESTRIL [Concomitant]
     Dosage: UNK
     Route: 048

REACTIONS (4)
  - ABDOMINAL PAIN UPPER [None]
  - BLOOD GLUCOSE INCREASED [None]
  - FLATULENCE [None]
  - SLEEP DISORDER [None]
